FAERS Safety Report 7380244-X (Version None)
Quarter: 2011Q1

REPORT INFORMATION
  Report Type: 
  Country: None (occurrence: None)
  Receive Date: 20110318
  Receipt Date: 20110303
  Transmission Date: 20110831
  Serious: Yes (Other)
  Sender: FDA-Public Use
  Company Number: 2011-085

PATIENT
  Sex: Female

DRUGS (1)
  1. PRIALT (ZICONOTIDE INTRATHECAL INFUSION) SOLUTION [Suspect]
     Dosage: 0.2 UG/HR INTRATHECAL
     Route: 037
     Dates: end: 20110303

REACTIONS (4)
  - PERSONALITY CHANGE [None]
  - DYSGEUSIA [None]
  - DEPRESSION [None]
  - HALLUCINATION, AUDITORY [None]
